FAERS Safety Report 13413678 (Version 3)
Quarter: 2018Q1

REPORT INFORMATION
  Report Type: Spontaneous
  Country: US (occurrence: US)
  Receive Date: 20170406
  Receipt Date: 20180310
  Transmission Date: 20180508
  Serious: No
  Sender: FDA-Public Use
  Company Number: US-JNJFOC-20170313661

PATIENT
  Age: 28 Year
  Sex: Male

DRUGS (6)
  1. RISPERDAL [Suspect]
     Active Substance: RISPERIDONE
     Indication: SCHIZOPHRENIA
     Route: 048
     Dates: end: 20130710
  2. RISPERDAL [Suspect]
     Active Substance: RISPERIDONE
     Indication: DEPRESSION
     Route: 048
     Dates: end: 20130710
  3. RISPERDAL [Suspect]
     Active Substance: RISPERIDONE
     Indication: DEPRESSION
     Dosage: ARYING DOSES OF 4 MG TAKE 2 TABLETS BY MOUTH, 0.5 MG AT BED TIME
     Route: 048
     Dates: start: 20071120, end: 20110916
  4. RISPERDAL [Suspect]
     Active Substance: RISPERIDONE
     Indication: SCHIZOPHRENIA
     Dosage: ARYING DOSES OF 4 MG TAKE 2 TABLETS BY MOUTH, 0.5 MG AT BED TIME
     Route: 048
     Dates: start: 20071120, end: 20110916
  5. RISPERIDONE. [Suspect]
     Active Substance: RISPERIDONE
     Indication: SCHIZOPHRENIA
     Dosage: VARYING DOSES OF 4 AND 6 MG
     Route: 048
     Dates: start: 20090206, end: 20130710
  6. RISPERIDONE. [Suspect]
     Active Substance: RISPERIDONE
     Indication: DEPRESSION
     Dosage: VARYING DOSES OF 4 AND 6 MG
     Route: 048
     Dates: start: 20090206, end: 20130710

REACTIONS (3)
  - Malaise [Unknown]
  - Gynaecomastia [Unknown]
  - Emotional distress [Unknown]

NARRATIVE: CASE EVENT DATE: 201302
